FAERS Safety Report 7774021-5 (Version None)
Quarter: 2011Q3

REPORT INFORMATION
  Report Type: 
  Country: None (occurrence: None)
  Receive Date: 20110923
  Receipt Date: 20110920
  Transmission Date: 20111222
  Serious: Yes (Other)
  Sender: FDA-Public Use
  Company Number: US-PFIZER INC-2011171783

PATIENT
  Sex: Female
  Weight: 66.2 kg

DRUGS (4)
  1. LISINOPRIL [Concomitant]
     Indication: HYPERTENSION
     Dosage: UNK
     Dates: start: 20090114
  2. FLEXERIL [Concomitant]
     Indication: PAIN
     Dosage: UNK
     Dates: start: 20090114
  3. LYRICA [Suspect]
     Indication: PAIN
     Dosage: 75 MG, 2X/DAY
     Route: 048
     Dates: start: 20110721, end: 20110802
  4. NORCO [Concomitant]
     Indication: PAIN
     Dosage: 7.5/325
     Dates: start: 20090524

REACTIONS (9)
  - MEMORY IMPAIRMENT [None]
  - ASTHENIA [None]
  - COGNITIVE DISORDER [None]
  - VISION BLURRED [None]
  - FEELING ABNORMAL [None]
  - HEADACHE [None]
  - HYPERSOMNIA [None]
  - SOMNOLENCE [None]
  - DIZZINESS [None]
